FAERS Safety Report 9614729 (Version 2)
Quarter: 2013Q4

REPORT INFORMATION
  Report Type: Report from Study
  Country: FR (occurrence: FR)
  Receive Date: 20131011
  Receipt Date: 20131018
  Transmission Date: 20140711
  Serious: Yes (Hospitalization, Other)
  Sender: FDA-Public Use
  Company Number: FR-ASTELLAS-2013EU008576

PATIENT
  Age: 70 Year
  Sex: Male
  Weight: 61 kg

DRUGS (7)
  1. ENZALUTAMIDE [Suspect]
     Indication: PROSTATE CANCER
     Dosage: 160 UNK, UID/QD
     Route: 048
     Dates: start: 20130517, end: 20130913
  2. OMEPRAZOLE [Concomitant]
     Indication: GASTRITIS
     Dosage: 20 MG, UID/QD
     Route: 048
     Dates: start: 201202
  3. LYTOS [Concomitant]
     Indication: METASTASES TO BONE
     Dosage: 520 MG, BID
     Route: 065
     Dates: start: 201210
  4. BISOPROLOL [Concomitant]
     Indication: CARDIAC DISORDER
     Dosage: 1.25 MG, UNKNOWN/D
     Route: 048
     Dates: start: 201201
  5. KARDEGIC [Concomitant]
     Indication: CARDIAC DISORDER
     Dosage: 75 MG, UNKNOWN/D
     Route: 048
     Dates: start: 201201
  6. PERINDOPRIL [Concomitant]
     Indication: CARDIAC DISORDER
     Dosage: 4 MG, UID/QD
     Route: 065
     Dates: start: 2010
  7. PRAVASTATINE [Concomitant]
     Indication: DYSLIPIDAEMIA
     Dosage: 20 MG, UNKNOWN/D
     Route: 048
     Dates: start: 201201

REACTIONS (3)
  - Malignant neoplasm progression [Unknown]
  - Thrombotic microangiopathy [Recovered/Resolved with Sequelae]
  - Renal impairment [Recovering/Resolving]
